FAERS Safety Report 5371552-2 (Version None)
Quarter: 2007Q2

REPORT INFORMATION
  Report Type: 
  Country: None (occurrence: None)
  Receive Date: 20070625
  Receipt Date: 20070625
  Transmission Date: 20071010
  Serious: Yes (Hospitalization)
  Sender: FDA-Public Use
  Company Number: None

PATIENT
  Age: 80 Year
  Sex: Male

DRUGS (1)
  1. SULFAMETHOXAZOLE AND TRIMETHOPRIM [Suspect]
     Indication: CELLULITIS
     Dosage: 1600  320MG BID PO
     Route: 048
     Dates: start: 20070305, end: 20070309

REACTIONS (3)
  - GASTRIC HAEMORRHAGE [None]
  - HAEMORRHAGE [None]
  - THROMBOCYTOPENIA [None]
